FAERS Safety Report 6278031-9 (Version None)
Quarter: 2009Q3

REPORT INFORMATION
  Report Type: 
  Country: None (occurrence: None)
  Receive Date: 20090722
  Receipt Date: 20090710
  Transmission Date: 20100115
  Serious: Yes (Other)
  Sender: FDA-Public Use
  Company Number: PHHY2009CH28402

PATIENT
  Sex: Male

DRUGS (4)
  1. ZOMETA [Suspect]
     Indication: PROSTATE CANCER METASTATIC
     Dosage: 4 MG, QMO
     Route: 042
     Dates: start: 20040101
  2. SINTROM [Suspect]
     Indication: PROSTATE CANCER METASTATIC
     Route: 048
  3. FORTECORTIN [Suspect]
     Indication: PROSTATE CANCER METASTATIC
     Dosage: UNK
     Route: 048
  4. ZOLADEX [Concomitant]
     Route: 058

REACTIONS (3)
  - BONE DISORDER [None]
  - JAW OPERATION [None]
  - OSTEONECROSIS [None]
